FAERS Safety Report 9005979 (Version 1)
Quarter: 2013Q1

REPORT INFORMATION
  Report Type: Spontaneous
  Country: US (occurrence: US)
  Receive Date: 20130109
  Receipt Date: 20130109
  Transmission Date: 20140127
  Serious: Yes (Other)
  Sender: FDA-Public Use
  Company Number: US-009507513-1301USA002033

PATIENT
  Age: 21 Year
  Sex: Male

DRUGS (5)
  1. SINGULAIR [Suspect]
     Route: 048
  2. ACETAMINOPHEN W/HYDROCODONE BITARTRATE [Suspect]
     Route: 048
  3. IBUPROFEN [Suspect]
     Route: 048
  4. ACETAMINOPHEN [Suspect]
     Route: 048
  5. ACETAMINOPHEN W/PROPOXYPHENE [Suspect]
     Indication: PRODUCT USED FOR UNKNOWN INDICATION
     Route: 048

REACTIONS (1)
  - Intentional overdose [Unknown]
